FAERS Safety Report 7794876-8 (Version None)
Quarter: 2011Q4

REPORT INFORMATION
  Report Type: 
  Country: None (occurrence: None)
  Receive Date: 20111004
  Receipt Date: 20110927
  Transmission Date: 20120403
  Serious: Yes (Other)
  Sender: FDA-Public Use
  Company Number: PHHY2011HU83337

PATIENT
  Sex: Female

DRUGS (1)
  1. LETROZOLE [Suspect]
     Dosage: 2.5 MG, DAILY
     Dates: start: 20070228

REACTIONS (2)
  - HAEMANGIOMA [None]
  - SPINAL CORD COMPRESSION [None]
